FAERS Safety Report 12313794 (Version 1)
Quarter: 2016Q2

REPORT INFORMATION
  Report Type: Spontaneous
  Country: US (occurrence: None)
  Receive Date: 20160427
  Receipt Date: 20160427
  Transmission Date: 20160815
  Serious: Yes (Disabling, Other)
  Sender: FDA-Public Use
  Company Number: None

PATIENT
  Age: 62 Year
  Sex: Female
  Weight: 58.06 kg

DRUGS (6)
  1. OMEPRAZOLE DR [Suspect]
     Active Substance: OMEPRAZOLE
     Indication: GASTRIC PERFORATION
     Dates: start: 20151022, end: 20151230
  2. SIMVASTATIN. [Concomitant]
     Active Substance: SIMVASTATIN
  3. LISINOPRIL. [Concomitant]
     Active Substance: LISINOPRIL
  4. ALENDRONATE [Concomitant]
     Active Substance: ALENDRONATE SODIUM
  5. MULTIVITAMIN [Concomitant]
     Active Substance: VITAMINS
  6. FLAX OIL [Concomitant]

REACTIONS (5)
  - Stomatitis [None]
  - Torticollis [None]
  - Mass [None]
  - Skin exfoliation [None]
  - Neck mass [None]

NARRATIVE: CASE EVENT DATE: 20151212
